FAERS Safety Report 9563921 (Version 2)
Quarter: 2013Q4

REPORT INFORMATION
  Report Type: Spontaneous
  Country: CA (occurrence: CA)
  Receive Date: 20130927
  Receipt Date: 20131009
  Transmission Date: 20140711
  Serious: Yes (Other)
  Sender: FDA-Public Use
  Company Number: CA-JNJFOC-20130913606

PATIENT
  Age: 16 Year
  Sex: Male
  Weight: 54.43 kg

DRUGS (1)
  1. BENADRYL [Suspect]
     Indication: EUPHORIC MOOD
     Route: 048
     Dates: start: 20130920, end: 20130920

REACTIONS (4)
  - Unevaluable event [Recovering/Resolving]
  - Delusion [Recovering/Resolving]
  - Heart rate increased [Recovering/Resolving]
  - Intentional drug misuse [Unknown]
